FAERS Safety Report 7059527-9 (Version None)
Quarter: 2010Q4

REPORT INFORMATION
  Report Type: 
  Country: None (occurrence: None)
  Receive Date: 20101025
  Receipt Date: 20101014
  Transmission Date: 20110411
  Serious: Yes (Other)
  Sender: FDA-Public Use
  Company Number: JP-JNJFOC-20100801835

PATIENT
  Sex: Male
  Weight: 57 kg

DRUGS (22)
  1. REMICADE [Suspect]
     Indication: RHEUMATOID ARTHRITIS
     Dosage: A TOTAL OF 3 INFUSIONS
     Route: 042
  2. REMICADE [Suspect]
     Dosage: 18TH INFUSION
     Route: 042
  3. REMICADE [Suspect]
     Dosage: 20TH INFUSION
     Route: 042
  4. REMICADE [Suspect]
     Dosage: 22ND INFUSION
     Route: 042
  5. REMICADE [Suspect]
     Dosage: 25TH INFUSION
     Route: 042
  6. REMICADE [Suspect]
     Dosage: 27TH INFUSION
     Route: 042
  7. REMICADE [Suspect]
     Route: 042
  8. METALCAPTASE [Concomitant]
     Indication: SCLERODERMA
     Route: 048
  9. RHEUMATREX [Concomitant]
     Indication: RHEUMATOID ARTHRITIS
     Route: 048
  10. PREDNISOLONE [Concomitant]
     Indication: RHEUMATOID ARTHRITIS
     Route: 042
  11. PREDNISOLONE [Concomitant]
     Route: 042
  12. PREDNISOLONE [Concomitant]
     Indication: PROPHYLAXIS
     Route: 042
  13. PREDNISOLONE [Concomitant]
     Route: 042
  14. KEBERA S [Concomitant]
     Indication: PROPHYLAXIS
     Route: 042
  15. FLOMOX [Concomitant]
     Dosage: 3 TAB
     Route: 048
  16. BACTRIM [Concomitant]
     Dosage: 1 TAB
     Route: 048
  17. TAKEPRON [Concomitant]
     Indication: REFLUX OESOPHAGITIS
     Route: 048
  18. LOXONIN [Concomitant]
     Indication: RHEUMATOID ARTHRITIS
     Route: 048
  19. PROMAC (POLAPREZINC) [Concomitant]
     Indication: GASTRITIS
     Route: 048
  20. ISOTONIC SODIUM CHLORIDE [Concomitant]
  21. GLUCOSE [Concomitant]
     Indication: HYPOGLYCAEMIA
     Route: 042
  22. OXYGEN [Concomitant]

REACTIONS (7)
  - ANAPHYLACTIC REACTION [None]
  - BLOOD GLUCOSE DECREASED [None]
  - DYSGEUSIA [None]
  - INFUSION RELATED REACTION [None]
  - PYREXIA [None]
  - RASH [None]
  - RED BLOOD CELL COUNT DECREASED [None]
